FAERS Safety Report 8879768 (Version 2)
Quarter: 2012Q4

REPORT INFORMATION
  Report Type: 
  Country: US (occurrence: US)
  Receive Date: 20121101
  Receipt Date: 20121113
  Transmission Date: 20130627
  Serious: Yes (Hospitalization, Other)
  Sender: FDA-Public Use
  Company Number: US-BRISTOL-MYERS SQUIBB COMPANY-17057092

PATIENT
  Age: 54 Year
  Sex: Female

DRUGS (1)
  1. ORENCIA [Suspect]
     Indication: RHEUMATOID ARTHRITIS
     Dosage: Last inf: 18SEP2012.Inter on 10Oct2012 and resumed; Route: Infusion
     Route: 042
     Dates: start: 20120120

REACTIONS (2)
  - Haemorrhage [Recovering/Resolving]
  - Pneumonia [Recovering/Resolving]
